FAERS Safety Report 4273827-7 (Version None)
Quarter: 2004Q1

REPORT INFORMATION
  Report Type: 
  Country: None (occurrence: None)
  Receive Date: 20040120
  Receipt Date: 20040112
  Transmission Date: 20041129
  Serious: Yes (Other)
  Sender: FDA-Public Use
  Company Number: PHNU2004DE00515

PATIENT
  Age: 64 Year
  Sex: Female

DRUGS (1)
  1. LAMISIL [Suspect]
     Indication: ONYCHOMYCOSIS
     Route: 048
     Dates: start: 20030930, end: 20040113

REACTIONS (2)
  - DEAFNESS NEUROSENSORY [None]
  - HEARING IMPAIRED [None]
